FAERS Safety Report 19570436 (Version 2)
Quarter: 2021Q4

REPORT INFORMATION
  Report Type: Spontaneous
  Country: US (occurrence: US)
  Receive Date: 20210715
  Receipt Date: 20211110
  Transmission Date: 20220303
  Serious: No
  Sender: FDA-Public Use
  Company Number: US-PFIZER INC-2021574952

PATIENT
  Age: 67 Year
  Sex: Female

DRUGS (3)
  1. TOZINAMERAN [Suspect]
     Active Substance: TOZINAMERAN
     Indication: COVID-19 immunisation
     Dosage: DOSE 1, SINGLE
     Dates: start: 20210211, end: 20210211
  2. TOZINAMERAN [Suspect]
     Active Substance: TOZINAMERAN
     Dosage: DOSE 2, SINGLE
     Dates: start: 20210304, end: 20210304
  3. PREMARIN [Suspect]
     Active Substance: ESTROGENS, CONJUGATED
     Dosage: UNK

REACTIONS (4)
  - Malaise [Unknown]
  - Feeling abnormal [Unknown]
  - Vaccination site pain [Unknown]
  - Vaccination site discomfort [Unknown]

NARRATIVE: CASE EVENT DATE: 20210101
